FAERS Safety Report 25379521 (Version 1)
Quarter: 2025Q2

REPORT INFORMATION
  Report Type: Spontaneous
  Country: US (occurrence: None)
  Receive Date: 20250529
  Receipt Date: 20250529
  Transmission Date: 20250716
  Serious: Yes (Other)
  Sender: FDA-CTU
  Company Number: None

PATIENT
  Age: 65 Year
  Sex: Female
  Weight: 52.2 kg

DRUGS (8)
  1. PAXLOVID [Suspect]
     Active Substance: NIRMATRELVIR\RITONAVIR
     Indication: SARS-CoV-2 test positive
     Dosage: OTHER QUANTITY : 3 TABLET(S);?FREQUENCY : TWICE A DAY;?
     Route: 048
     Dates: start: 20250415, end: 20250420
  2. NEVRO STIMULATOR IMPLANT FOR PAIN. [Concomitant]
  3. LAMICTAL [Concomitant]
     Active Substance: LAMOTRIGINE
  4. KLONOPIN [Concomitant]
     Active Substance: CLONAZEPAM
  5. OMEPRAZOLE [Concomitant]
     Active Substance: OMEPRAZOLE
  6. VALTREX PRN FOR SHINGLES + B-12 WEEKLY INJECTION [Concomitant]
  7. VITAMIN C [Concomitant]
     Active Substance: ASCORBIC ACID
  8. ZINC [Concomitant]
     Active Substance: ZINC

REACTIONS (11)
  - Brain fog [None]
  - Dizziness [None]
  - Pyrexia [None]
  - Decreased appetite [None]
  - Hallucination [None]
  - Thinking abnormal [None]
  - Dyslexia [None]
  - Visual impairment [None]
  - Photophobia [None]
  - Feeling abnormal [None]
  - Weight decreased [None]

NARRATIVE: CASE EVENT DATE: 20250421
